FAERS Safety Report 4295506-2 (Version None)
Quarter: 2004Q1

REPORT INFORMATION
  Report Type: 
  Country: None (occurrence: None)
  Receive Date: 20040216
  Receipt Date: 20030714
  Transmission Date: 20041129
  Serious: No
  Sender: FDA-Public Use
  Company Number: US-GLAXOSMITHKLINE-A0416613A

PATIENT
  Sex: Female

DRUGS (4)
  1. PAXIL [Suspect]
     Indication: PANIC REACTION
     Dosage: 5MG PER DAY
     Route: 048
  2. XANAX [Concomitant]
  3. VERAPAMIL [Concomitant]
  4. SYNTHROID [Concomitant]

REACTIONS (3)
  - FEELING DRUNK [None]
  - GASTRIC DISORDER [None]
  - LIMB INJURY [None]
